FAERS Safety Report 7262316-3 (Version None)
Quarter: 2011Q1

REPORT INFORMATION
  Report Type: 
  Country: None (occurrence: None)
  Receive Date: 20110130
  Receipt Date: 20101127
  Transmission Date: 20110831
  Serious: No
  Sender: FDA-Public Use
  Company Number: US-ABBOTT-10P-163-0687994-00

PATIENT
  Age: 48 Year
  Sex: Female

DRUGS (5)
  1. CHORATHYRODONE [Concomitant]
     Indication: BLOOD PRESSURE
  2. HUMIRA [Suspect]
  3. HUMIRA [Suspect]
     Indication: CROHN'S DISEASE
     Dosage: LOADING DOSE 4 INJECTIONS
     Dates: start: 20101019, end: 20101019
  4. OXYCODONE [Concomitant]
     Indication: PAIN
     Dates: end: 20101124
  5. PREVACID [Concomitant]
     Indication: DYSPEPSIA

REACTIONS (5)
  - CHILLS [None]
  - VOMITING [None]
  - NASAL CONGESTION [None]
  - DIARRHOEA [None]
  - NAUSEA [None]
